FAERS Safety Report 4613873-4 (Version None)
Quarter: 2005Q1

REPORT INFORMATION
  Report Type: 
  Country: None (occurrence: None)
  Receive Date: 20050321
  Receipt Date: 20040405
  Transmission Date: 20050727
  Serious: Yes (Hospitalization, Other)
  Sender: FDA-Public Use
  Company Number: PHRM2004FR01471

PATIENT
  Age: 43 Year
  Sex: Male

DRUGS (4)
  1. INSULIN [Concomitant]
     Indication: DIABETES MELLITUS
  2. PRAVASTATIN [Concomitant]
     Route: 048
  3. GLUCOPHAGE ^LIPHA^ [Concomitant]
     Indication: DIABETES MELLITUS
     Route: 048
  4. LAMISIL [Suspect]
     Indication: NAIL TINEA
     Dosage: 250 MG, QD
     Route: 048
     Dates: start: 20020729, end: 20020912

REACTIONS (3)
  - CUTANEOUS LUPUS ERYTHEMATOSUS [None]
  - DRUG ERUPTION [None]
  - RASH ERYTHEMATOUS [None]
